FAERS Safety Report 12242666 (Version 1)
Quarter: 2016Q2

REPORT INFORMATION
  Report Type: Spontaneous
  Country: NL (occurrence: NL)
  Receive Date: 20160406
  Receipt Date: 20160406
  Transmission Date: 20160815
  Serious: Yes (Life-Threatening)
  Sender: FDA-Public Use
  Company Number: NL-WATSON-2016-06647

PATIENT
  Age: 16 Year
  Sex: Male
  Weight: 72 kg

DRUGS (1)
  1. MINOCYCLINE [Suspect]
     Active Substance: MINOCYCLINE\MINOCYCLINE HYDROCHLORIDE
     Indication: ACNE
     Dosage: 50 MG, BID
     Route: 048
     Dates: start: 201503

REACTIONS (1)
  - Vitamin B12 deficiency [Unknown]

NARRATIVE: CASE EVENT DATE: 201602
